FAERS Safety Report 14235437 (Version 1)
Quarter: 2017Q4

REPORT INFORMATION
  Report Type: Spontaneous
  Country: JP (occurrence: JP)
  Receive Date: 20171129
  Receipt Date: 20171129
  Transmission Date: 20180321
  Serious: Yes (Hospitalization, Disabling, Other)
  Sender: FDA-Public Use
  Company Number: JP-009507513-1711JPN000389J

PATIENT
  Age: 69 Year

DRUGS (5)
  1. PNEUMOVAX NP [Suspect]
     Active Substance: PNEUMOCOCCAL VACCINE, POLYVALENT 23
     Indication: PROPHYLAXIS
     Route: 058
     Dates: start: 20171102, end: 20171102
  2. LOXONIN [Concomitant]
     Active Substance: LOXOPROFEN SODIUM
     Dosage: UNK
     Route: 065
  3. URIEF [Concomitant]
     Active Substance: SILODOSIN
     Dosage: UNK
     Route: 065
  4. BCG LIVE [Suspect]
     Active Substance: BACILLUS CALMETTE-GUERIN SUBSTRAIN TICE LIVE ANTIGEN
     Dosage: UNK, QW
     Route: 065
  5. BICALUTAMIDE. [Concomitant]
     Active Substance: BICALUTAMIDE
     Dosage: UNK
     Route: 065

REACTIONS (1)
  - Reiter^s syndrome [Not Recovered/Not Resolved]

NARRATIVE: CASE EVENT DATE: 20171103
